FAERS Safety Report 13567113 (Version 1)
Quarter: 2017Q2

REPORT INFORMATION
  Report Type: Spontaneous
  Country: US (occurrence: US)
  Receive Date: 20170522
  Receipt Date: 20170522
  Transmission Date: 20170830
  Serious: No
  Sender: FDA-Public Use
  Company Number: US-BAYER-2017-096497

PATIENT
  Age: 85 Year
  Sex: Female
  Weight: 55.33 kg

DRUGS (1)
  1. MIRALAX [Suspect]
     Active Substance: POLYETHYLENE GLYCOL 3350
     Indication: COLONOSCOPY
     Dosage: UNK, ONCE
     Route: 048
     Dates: start: 20170522, end: 20170522

REACTIONS (3)
  - Product use in unapproved indication [None]
  - Off label use [Unknown]
  - Product use issue [Unknown]
